FAERS Safety Report 6371629-9 (Version None)
Quarter: 2009Q3

REPORT INFORMATION
  Report Type: 
  Country: None (occurrence: None)
  Receive Date: 20090923
  Receipt Date: 20080304
  Transmission Date: 20100115
  Serious: No
  Sender: FDA-Public Use
  Company Number: US-ASTRAZENECA-2008UW01133

PATIENT
  Age: 547 Month
  Sex: Female
  Weight: 52.2 kg

DRUGS (12)
  1. SEROQUEL [Suspect]
     Indication: BIPOLAR DISORDER
     Dosage: 100MG-1000 MG
     Route: 048
     Dates: start: 20010831
  2. SEROQUEL [Suspect]
     Dosage: 200 MG TO 800 MG
     Route: 048
     Dates: start: 20050601
  3. DEPAKOTE [Concomitant]
  4. GLUCOPHAGE [Concomitant]
  5. LEXAPRO [Concomitant]
  6. AMBIEN [Concomitant]
  7. RISPERDAL [Concomitant]
  8. COGENTIN [Concomitant]
  9. GLIPIZIDE [Concomitant]
  10. ACETAMINOPHEN [Concomitant]
  11. LORAZEPAM [Concomitant]
  12. GEODON [Concomitant]

REACTIONS (1)
  - DIABETES MELLITUS INADEQUATE CONTROL [None]
